FAERS Safety Report 17939444 (Version 1)
Quarter: 2020Q2

REPORT INFORMATION
  Report Type: Spontaneous
  Country: FR (occurrence: FR)
  Receive Date: 20200624
  Receipt Date: 20200624
  Transmission Date: 20200714
  Serious: Yes (Other)
  Sender: FDA-Public Use
  Company Number: FR-PFIZER INC-2020240555

PATIENT
  Age: 34 Year
  Sex: Male

DRUGS (1)
  1. DALACINE [Suspect]
     Active Substance: CLINDAMYCIN
     Indication: PULPITIS DENTAL
     Dosage: 2 DF, SINGLE
     Route: 048
     Dates: start: 20200601, end: 20200601

REACTIONS (3)
  - Off label use [Unknown]
  - Product use issue [Unknown]
  - Chest discomfort [Recovered/Resolved]

NARRATIVE: CASE EVENT DATE: 20200601
